FAERS Safety Report 8597613-2 (Version None)
Quarter: 2012Q3

REPORT INFORMATION
  Report Type: 
  Country: None (occurrence: None)
  Receive Date: 20120806
  Receipt Date: 20120718
  Transmission Date: 20120928
  Serious: Yes (Other)
  Sender: FDA-Public Use
  Company Number: JPI-P-022862

PATIENT
  Age: 67 Year
  Sex: Female
  Weight: 78.0187 kg

DRUGS (14)
  1. LOVAZA [Concomitant]
  2. XYREM [Suspect]
     Indication: HYPERSOMNIA
     Dosage: 3 GM (1.5 GM, 2 IN 1 D), ORAL; ORAL; 9 G, (4.5 GM, 2 IN 1 D), ORAL
     Route: 048
     Dates: start: 20061214
  3. XYREM [Suspect]
     Indication: HYPERSOMNIA
     Dosage: 3 GM (1.5 GM, 2 IN 1 D), ORAL; ORAL; 9 G, (4.5 GM, 2 IN 1 D), ORAL
     Route: 048
     Dates: start: 20061229
  4. XYREM [Suspect]
     Indication: HYPERSOMNIA
     Dosage: 3 GM (1.5 GM, 2 IN 1 D), ORAL; ORAL; 9 G, (4.5 GM, 2 IN 1 D), ORAL
     Route: 048
     Dates: start: 20060101, end: 20060101
  5. MORPHINE [Concomitant]
  6. OMEPRAZOLE [Concomitant]
  7. PSYLLIUM [Concomitant]
  8. PROCHLORPERAZINE [Concomitant]
  9. MULTI-VITAMINS [Concomitant]
  10. SENNA [Concomitant]
  11. OXYBUTYNIN [Concomitant]
  12. VITAMIN D [Concomitant]
  13. BIOTIN [Concomitant]
  14. POLYETHLENE GLYCOL [Concomitant]

REACTIONS (5)
  - RENAL CANCER [None]
  - CONSTIPATION [None]
  - PROCEDURAL PAIN [None]
  - MUSCULOSKELETAL PAIN [None]
  - MALIGNANT MUSCLE NEOPLASM [None]
